FAERS Safety Report 4750483-2 (Version None)
Quarter: 2005Q3

REPORT INFORMATION
  Report Type: 
  Country: None (occurrence: None)
  Receive Date: 20050823
  Receipt Date: 20050713
  Transmission Date: 20060218
  Serious: Yes (Hospitalization)
  Sender: FDA-Public Use
  Company Number: JP-GLAXOSMITHKLINE-B0387788A

PATIENT
  Age: 85 Year
  Sex: Male

DRUGS (6)
  1. VALTREX [Suspect]
     Indication: HERPES ZOSTER
     Dosage: 1000MG THREE TIMES PER DAY
     Route: 048
     Dates: start: 20050704, end: 20050706
  2. BASEN [Concomitant]
     Route: 048
  3. DIOVAN [Concomitant]
     Route: 048
  4. NORVASC [Concomitant]
     Indication: HYPERTENSION
     Dosage: 2.5MG PER DAY
     Route: 048
     Dates: start: 20030728
  5. ASPIRIN [Concomitant]
     Indication: CEREBRAL INFARCTION
     Dosage: 100MG PER DAY
     Route: 048
     Dates: start: 20030701
  6. AMARYL [Concomitant]
     Indication: DIABETES MELLITUS
     Dosage: 1MG PER DAY
     Route: 048
     Dates: start: 20030728

REACTIONS (6)
  - ANOREXIA [None]
  - BLOOD CREATININE INCREASED [None]
  - BLOOD UREA INCREASED [None]
  - DECREASED APPETITE [None]
  - PYREXIA [None]
  - RENAL FAILURE ACUTE [None]
